FAERS Safety Report 5318106-1 (Version None)
Quarter: 2007Q2

REPORT INFORMATION
  Report Type: 
  Country: None (occurrence: None)
  Receive Date: 20070507
  Receipt Date: 20070426
  Transmission Date: 20071010
  Serious: Yes (Other)
  Sender: FDA-Public Use
  Company Number: FI-JNJFOC-20070406342

PATIENT
  Age: 17 Year
  Sex: Female

DRUGS (2)
  1. TOPIMAX [Suspect]
     Indication: MIGRAINE PROPHYLAXIS
  2. CLOTAM [Suspect]
     Indication: DRUG USE FOR UNKNOWN INDICATION

REACTIONS (3)
  - ELECTROCARDIOGRAM T WAVE INVERSION [None]
  - OVERDOSE [None]
  - SUICIDE ATTEMPT [None]
